FAERS Safety Report 23487865 (Version 1)
Quarter: 2024Q1

REPORT INFORMATION
  Report Type: Spontaneous
  Country: US (occurrence: None)
  Receive Date: 20240205
  Receipt Date: 20240205
  Transmission Date: 20240410
  Serious: Yes (Disabling)
  Sender: FDA-Public Use
  Company Number: None

PATIENT
  Age: 23 Year
  Sex: Female
  Weight: 148.5 kg

DRUGS (5)
  1. WEGOVY [Suspect]
     Active Substance: SEMAGLUTIDE
     Indication: Weight decreased
     Dates: start: 20231208, end: 20240104
  2. Birth Control (Estarylla) [Concomitant]
  3. L-Teanine [Concomitant]
  4. Vitamin D [Concomitant]
  5. POTASSIUM [Concomitant]

REACTIONS (12)
  - Inability to afford medication [None]
  - Anxiety [None]
  - Panic attack [None]
  - Derealisation [None]
  - Vision blurred [None]
  - Palpitations [None]
  - Palpitations [None]
  - Disorientation [None]
  - Confusional state [None]
  - Feeling abnormal [None]
  - Memory impairment [None]
  - Quality of life decreased [None]

NARRATIVE: CASE EVENT DATE: 20240103
